FAERS Safety Report 19041279 (Version 1)
Quarter: 2021Q1

REPORT INFORMATION
  Report Type: Spontaneous
  Country: US (occurrence: US)
  Receive Date: 20210322
  Receipt Date: 20210322
  Transmission Date: 20210420
  Serious: Yes (Other)
  Sender: FDA-Public Use
  Company Number: US-GLAXOSMITHKLINE-US2021GSK066864

PATIENT
  Sex: Male

DRUGS (5)
  1. ZANTAC [Suspect]
     Active Substance: RANITIDINE HYDROCHLORIDE
     Indication: INTESTINAL ULCER
     Dosage: 150 MG
     Route: 065
     Dates: start: 199601, end: 201501
  2. ZANTAC [Suspect]
     Active Substance: RANITIDINE HYDROCHLORIDE
     Indication: INTESTINAL ULCER
     Dosage: UNKNOWN AT THIS TIME PRESCRIPTION
     Route: 065
     Dates: start: 199601, end: 201501
  3. RANITIDINE. [Suspect]
     Active Substance: RANITIDINE
     Indication: INTESTINAL ULCER
     Dosage: 150 MG
     Route: 065
     Dates: start: 199601, end: 201501
  4. RANITIDINE. [Suspect]
     Active Substance: RANITIDINE
     Indication: INTESTINAL ULCER
     Dosage: 150 MG
     Route: 065
     Dates: start: 199601, end: 201501
  5. ZANTAC [Suspect]
     Active Substance: RANITIDINE HYDROCHLORIDE
     Indication: INTESTINAL ULCER
     Dosage: 150 MG
     Route: 065
     Dates: start: 199601, end: 201501

REACTIONS (3)
  - Non-Hodgkin^s lymphoma [Unknown]
  - Lung neoplasm malignant [Unknown]
  - Renal cancer [Unknown]
